FAERS Safety Report 8334071-7 (Version None)
Quarter: 2012Q2

REPORT INFORMATION
  Report Type: 
  Country: None (occurrence: None)
  Receive Date: 20120503
  Receipt Date: 20120420
  Transmission Date: 20120825
  Serious: Yes (Hospitalization, Other)
  Sender: FDA-Public Use
  Company Number: IE-ROCHE-1064199

PATIENT
  Sex: Female
  Weight: 64.9 kg

DRUGS (3)
  1. FLUTICASONE PROPIONATE/SALMETEROL [Concomitant]
  2. ALBUTEROL [Concomitant]
  3. XOLAIR [Suspect]
     Indication: ASTHMA
     Route: 058
     Dates: start: 20120313, end: 20120327

REACTIONS (6)
  - HEADACHE [None]
  - WHEEZING [None]
  - DIZZINESS [None]
  - ASTHMA [None]
  - PEAK EXPIRATORY FLOW RATE DECREASED [None]
  - MALAISE [None]
